FAERS Safety Report 4808302-1 (Version None)
Quarter: 2005Q4

REPORT INFORMATION
  Report Type: 
  Country: None (occurrence: None)
  Receive Date: 20051021
  Receipt Date: 20020715
  Transmission Date: 20060501
  Serious: No
  Sender: FDA-Public Use
  Company Number: EWC020731780

PATIENT
  Age: 28 Year
  Sex: Male

DRUGS (1)
  1. OLANZAPINE [Suspect]
     Indication: SCHIZOPHRENIA
     Dosage: 15 MG/ DAY

REACTIONS (1)
  - NEUTROPHIL COUNT DECREASED [None]
